FAERS Safety Report 13496480 (Version 1)
Quarter: 2017Q2

REPORT INFORMATION
  Report Type: Spontaneous
  Country: US (occurrence: US)
  Receive Date: 20170428
  Receipt Date: 20170428
  Transmission Date: 20170830
  Serious: Yes (Other)
  Sender: FDA-Public Use
  Company Number: None

PATIENT
  Age: 51 Year
  Sex: Female
  Weight: 67.5 kg

DRUGS (1)
  1. ZYLET [Suspect]
     Active Substance: LOTEPREDNOL ETABONATE\TOBRAMYCIN
     Indication: EYE INFECTION
     Route: 047
     Dates: start: 20170407, end: 20170415

REACTIONS (3)
  - Incision site inflammation [None]
  - Hypersensitivity [None]
  - Arthralgia [None]

NARRATIVE: CASE EVENT DATE: 20170418
